FAERS Safety Report 17659999 (Version 3)
Quarter: 2020Q3

REPORT INFORMATION
  Report Type: Report from Study
  Country: IL (occurrence: IL)
  Receive Date: 20200413
  Receipt Date: 20200703
  Transmission Date: 20201102
  Serious: Yes (Hospitalization)
  Sender: FDA-Public Use
  Company Number: IL-ROCHE-2576828

PATIENT
  Age: 54 Year
  Sex: Male

DRUGS (1)
  1. OCREVUS [Suspect]
     Active Substance: OCRELIZUMAB
     Indication: PRIMARY PROGRESSIVE MULTIPLE SCLEROSIS
     Route: 042
     Dates: start: 20180517

REACTIONS (6)
  - Herpes virus infection [Recovering/Resolving]
  - Cellulitis [Recovering/Resolving]
  - Lymphopenia [Recovering/Resolving]
  - General physical health deterioration [Recovering/Resolving]
  - Post herpetic neuralgia [Recovering/Resolving]
  - Pyrexia [Recovering/Resolving]

NARRATIVE: CASE EVENT DATE: 2020
